FAERS Safety Report 6564907-1 (Version None)
Quarter: 2010Q1

REPORT INFORMATION
  Report Type: 
  Country: None (occurrence: None)
  Receive Date: 20100201
  Receipt Date: 20100122
  Transmission Date: 20100710
  Serious: Yes (Other)
  Sender: FDA-Public Use
  Company Number: US-TEVA-211363USA

PATIENT
  Sex: Female
  Weight: 90.8 kg

DRUGS (1)
  1. CLARAVIS [Suspect]
     Indication: ACNE
     Route: 048
     Dates: start: 20090519, end: 20090930

REACTIONS (2)
  - ABORTION MISSED [None]
  - UNINTENDED PREGNANCY [None]
